FAERS Safety Report 18926857 (Version 1)
Quarter: 2021Q1

REPORT INFORMATION
  Report Type: Spontaneous
  Country: GB (occurrence: GB)
  Receive Date: 20210223
  Receipt Date: 20210223
  Transmission Date: 20210420
  Serious: Yes (Other)
  Sender: FDA-Public Use
  Company Number: GB-DRREDDYS-GER/UKI/21/0132145

PATIENT
  Age: 32 Year
  Sex: Male
  Weight: 110.21 kg

DRUGS (1)
  1. PREGABALIN. [Suspect]
     Active Substance: PREGABALIN
     Indication: FIBROMYALGIA
     Dosage: 100MG
     Route: 048
     Dates: start: 20200401, end: 20201001

REACTIONS (4)
  - Medication error [Unknown]
  - Vision blurred [Recovered/Resolved with Sequelae]
  - Amnesia [Recovering/Resolving]
  - Confusional state [Recovering/Resolving]

NARRATIVE: CASE EVENT DATE: 20200401
